FAERS Safety Report 8406458-5 (Version None)
Quarter: 2012Q2

REPORT INFORMATION
  Report Type: 
  Country: None (occurrence: None)
  Receive Date: 20120604
  Receipt Date: 20120531
  Transmission Date: 20120825
  Serious: Yes (Death)
  Sender: FDA-Public Use
  Company Number: CO-MPIJNJ-2012-03927

PATIENT

DRUGS (2)
  1. VELCADE [Suspect]
     Indication: MANTLE CELL LYMPHOMA
     Dosage: UNK
     Route: 042
     Dates: start: 20111012
  2. DEXAMETHASONE [Concomitant]

REACTIONS (2)
  - OFF LABEL USE [None]
  - DEATH [None]
